FAERS Safety Report 8596359 (Version 2)
Quarter: 2013Q4

REPORT INFORMATION
  Report Type: Spontaneous
  Country: US (occurrence: US)
  Receive Date: 20120605
  Receipt Date: 20131018
  Transmission Date: 20140711
  Serious: No
  Sender: FDA-Public Use
  Company Number: US-ASTRAZENECA-2012SE35827

PATIENT
  Age: 635 Month
  Sex: Male

DRUGS (4)
  1. NEXIUM [Suspect]
     Indication: ARTHRITIS
     Dosage: ONCE
     Route: 048
  2. GASTROLOC [Concomitant]
  3. PEPCID [Concomitant]
  4. TUMS [Concomitant]

REACTIONS (3)
  - Osteoporosis [Unknown]
  - Upper limb fracture [Unknown]
  - Impaired work ability [Unknown]
